FAERS Safety Report 6575261-3 (Version None)
Quarter: 2010Q1

REPORT INFORMATION
  Report Type: 
  Country: None (occurrence: None)
  Receive Date: 20100209
  Receipt Date: 20100205
  Transmission Date: 20100710
  Serious: Yes (Hospitalization, Other)
  Sender: FDA-Public Use
  Company Number: DE-ROCHE-646193

PATIENT
  Age: 70 Year
  Sex: Female
  Weight: 67.8 kg

DRUGS (7)
  1. CAPECITABINE [Suspect]
     Indication: BREAST CANCER
     Dosage: FREQ:1-14 DAYS EVERY 21 DAYS
     Route: 048
     Dates: start: 20071014, end: 20071018
  2. GABAPENTIN [Concomitant]
     Indication: PAIN
     Dosage: FREQUENCY:1-0-2
  3. IBUPROFEN [Concomitant]
     Indication: PAIN
     Dosage: FREQ: 1-1-1
     Dates: end: 20071108
  4. AMITRIPTYLINE HYDROCHLORIDE [Concomitant]
     Indication: DEPRESSION
     Dosage: FREQ:0-0-1/2
     Dates: end: 20071113
  5. RAMIPRIL [Concomitant]
     Indication: HYPERTENSION
     Dosage: FREQ: 1/2-0-0
     Dates: end: 20071106
  6. BONDRONAT [Concomitant]
     Indication: PROPHYLAXIS
     Dosage: FREQ:1-0-0
     Dates: end: 20071108
  7. MEGLUCON [Concomitant]
     Indication: DIABETES MELLITUS
     Dates: end: 20071112

REACTIONS (3)
  - ANAEMIA [None]
  - OSTEONECROSIS [None]
  - RENAL FAILURE [None]
